FAERS Safety Report 10286788 (Version 1)
Quarter: 2014Q3

REPORT INFORMATION
  Report Type: Spontaneous
  Country: FR (occurrence: None)
  Receive Date: 20140707
  Receipt Date: 20140707
  Transmission Date: 20150326
  Serious: Yes (Other)
  Sender: FDA-Public Use
  Company Number: 2014VER00066

PATIENT

DRUGS (5)
  1. BORTEZOMIB (BORTEZOMIB) [Suspect]
     Active Substance: BORTEZOMIB
     Indication: PLASMA CELL MYELOMA
  2. PEGYLATED LIPOSOMAL DOXORUBICIN (PEGYLATED LIPOSOMAL DOXORUBICIN) [Concomitant]
  3. ISONIAZID (ISONIAZID) [Concomitant]
     Active Substance: ISONIAZID
  4. DEXAMETHASONE (DEXAMETHASONE) [Concomitant]
     Active Substance: DEXAMETHASONE
  5. RIFAMPIN. [Suspect]
     Active Substance: RIFAMPIN
     Indication: LATENT TUBERCULOSIS

REACTIONS (2)
  - Monoclonal gammopathy [None]
  - Drug interaction [None]
